FAERS Safety Report 25331748 (Version 1)
Quarter: 2025Q2

REPORT INFORMATION
  Report Type: Spontaneous
  Country: US (occurrence: None)
  Receive Date: 20250519
  Receipt Date: 20250519
  Transmission Date: 20250717
  Serious: Yes (Other)
  Sender: FDA-CTU
  Company Number: None

PATIENT
  Age: 41 Year
  Sex: Female
  Weight: 93.8 kg

DRUGS (3)
  1. VITAMINS [Suspect]
     Active Substance: VITAMINS
     Route: 041
  2. thiamine 100 mg [Concomitant]
  3. folic acid 1 mg [Concomitant]

REACTIONS (4)
  - Dyspnoea [None]
  - Chest discomfort [None]
  - Erythema [None]
  - Infusion related reaction [None]

NARRATIVE: CASE EVENT DATE: 20250514
